FAERS Safety Report 6974862-8 (Version None)
Quarter: 2010Q3

REPORT INFORMATION
  Report Type: 
  Country: None (occurrence: None)
  Receive Date: 20100909
  Receipt Date: 20081216
  Transmission Date: 20110219
  Serious: No
  Sender: FDA-Public Use
  Company Number: US-WYE-H07343408

PATIENT
  Sex: Female
  Weight: 70.37 kg

DRUGS (5)
  1. PRISTIQ [Suspect]
     Indication: DEPRESSION
     Route: 048
     Dates: start: 20081001, end: 20081201
  2. PRISTIQ [Suspect]
     Route: 048
     Dates: start: 20081202
  3. METOPROLOL TARTRATE [Concomitant]
  4. ZOCOR [Concomitant]
  5. DIOVAN [Concomitant]

REACTIONS (2)
  - ANXIETY [None]
  - MEDICATION RESIDUE [None]
